FAERS Safety Report 6509581-5 (Version None)
Quarter: 2009Q4

REPORT INFORMATION
  Report Type: 
  Country: None (occurrence: None)
  Receive Date: 20091222
  Receipt Date: 20091210
  Transmission Date: 20100525
  Serious: Yes (Hospitalization, Other)
  Sender: FDA-Public Use
  Company Number: IN-SANOFI-AVENTIS-2009SA006191

PATIENT
  Age: 56 Year
  Sex: Male
  Weight: 57 kg

DRUGS (29)
  1. PLACEBO [Suspect]
     Indication: NON-SMALL CELL LUNG CANCER METASTATIC
     Route: 042
     Dates: start: 20091118, end: 20091118
  2. PLACEBO [Suspect]
     Dates: start: 20081203, end: 20081203
  3. DOCETAXEL [Suspect]
     Indication: NON-SMALL CELL LUNG CANCER METASTATIC
     Route: 042
     Dates: start: 20091118, end: 20091118
  4. DOCETAXEL [Suspect]
     Dates: start: 20081203, end: 20081203
  5. COLGEN [Concomitant]
  6. ALL OTHER THERAPEUTIC PRODUCTS [Concomitant]
  7. DUPHALAC /NET/ [Concomitant]
  8. ALL OTHER THERAPEUTIC PRODUCTS [Concomitant]
  9. BUDESONIDE [Concomitant]
  10. IPRATROPIUM/SALBUTAMOL [Concomitant]
  11. ALL OTHER THERAPEUTIC PRODUCTS [Concomitant]
  12. OMEPRAZOLE [Concomitant]
  13. DOMSTAL [Concomitant]
  14. ALPHA D3 [Concomitant]
     Dates: start: 20080901
  15. BECLOMETASONE [Concomitant]
     Dates: start: 20080901
  16. ALL OTHER THERAPEUTIC PRODUCTS [Concomitant]
     Dates: start: 20081101
  17. UREA [Concomitant]
     Dates: start: 20081101
  18. BECLOMETASONE [Concomitant]
     Dates: start: 20081101
  19. ALL OTHER THERAPEUTIC PRODUCTS [Concomitant]
     Dates: start: 20081203
  20. ALL OTHER THERAPEUTIC PRODUCTS [Concomitant]
     Dates: start: 20081203
  21. BETAMETHASONE/CLIOQUINOL [Concomitant]
     Dates: start: 20090114
  22. HISTAC [Concomitant]
     Dates: start: 20090502
  23. ALL OTHER THERAPEUTIC PRODUCTS [Concomitant]
     Dates: start: 20090522
  24. ALL OTHER THERAPEUTIC PRODUCTS [Concomitant]
     Dates: start: 20090707
  25. ALL OTHER THERAPEUTIC PRODUCTS [Concomitant]
     Dates: start: 20091007
  26. IPRATROPIUM/SALBUTAMOL [Concomitant]
     Dates: start: 20091007
  27. BUDECORT ^ASTRA^ [Concomitant]
     Dates: start: 20091007
  28. ALL OTHER THERAPEUTIC PRODUCTS [Concomitant]
     Dates: start: 20091029
  29. ALL OTHER THERAPEUTIC PRODUCTS [Concomitant]
     Dates: start: 20091112

REACTIONS (3)
  - IMPAIRED GASTRIC EMPTYING [None]
  - RESPIRATORY TRACT INFECTION [None]
  - TRANSIENT ISCHAEMIC ATTACK [None]
